FAERS Safety Report 7743903-2 (Version None)
Quarter: 2011Q3

REPORT INFORMATION
  Report Type: 
  Country: None (occurrence: None)
  Receive Date: 20110912
  Receipt Date: 20110902
  Transmission Date: 20111222
  Serious: Yes (Congenital Anomaly, Other)
  Sender: FDA-Public Use
  Company Number: US-GLAXOSMITHKLINE-A0944094B

PATIENT
  Sex: Female

DRUGS (3)
  1. LAMICTAL [Suspect]
     Indication: DEPRESSION
     Dosage: 100MG PER DAY
     Route: 064
     Dates: start: 20100115, end: 20100429
  2. WELLBUTRIN [Suspect]
     Indication: DEPRESSION
     Route: 064
  3. LAMICTAL [Suspect]
     Dosage: 400MG PER DAY
     Route: 064
     Dates: start: 20100707, end: 20100728

REACTIONS (6)
  - URINARY TRACT INFECTION [None]
  - MATERNAL EXPOSURE DURING PREGNANCY [None]
  - MATERNAL DRUGS AFFECTING FOETUS [None]
  - HYDRONEPHROSIS [None]
  - PREMATURE BABY [None]
  - VESICOURETERIC REFLUX [None]
